FAERS Safety Report 6744505-7 (Version None)
Quarter: 2010Q2

REPORT INFORMATION
  Report Type: 
  Country: None (occurrence: None)
  Receive Date: 20100526
  Receipt Date: 20100526
  Transmission Date: 20101027
  Serious: Yes (Hospitalization)
  Sender: FDA-Public Use
  Company Number: None

PATIENT
  Sex: Male
  Weight: 68.2 kg

DRUGS (8)
  1. CARBAMAZEPINE [Suspect]
     Indication: TRIGEMINAL NEURALGIA
     Dosage: TID ORAL/PEG
     Route: 048
     Dates: start: 20090725, end: 20090920
  2. GABAPENTIN [Suspect]
     Indication: POST HERPETIC NEURALGIA
     Dosage: TID PEG
     Dates: start: 20090920, end: 20091101
  3. ZYVOX [Concomitant]
  4. VANCOMYCIN [Concomitant]
  5. TIGECYCLINE [Concomitant]
  6. METRONIDAZOLE [Concomitant]
  7. CEFEPIME [Concomitant]
  8. ZOSYN [Concomitant]

REACTIONS (15)
  - CONFUSIONAL STATE [None]
  - DRUG INEFFECTIVE [None]
  - FALL [None]
  - GASTROINTESTINAL HAEMORRHAGE [None]
  - HERPES ZOSTER [None]
  - NO THERAPEUTIC RESPONSE [None]
  - PNEUMONIA ASPIRATION [None]
  - RESPIRATORY DEPRESSION [None]
  - RESPIRATORY DISTRESS [None]
  - SCREAMING [None]
  - SOMNOLENCE [None]
  - SUDDEN HEARING LOSS [None]
  - TRIGEMINAL NEURALGIA [None]
  - URINARY TRACT INFECTION [None]
  - WHITE BLOOD CELL COUNT INCREASED [None]
